FAERS Safety Report 6708236-1 (Version None)
Quarter: 2010Q2

REPORT INFORMATION
  Report Type: 
  Country: None (occurrence: None)
  Receive Date: 20100503
  Receipt Date: 20090715
  Transmission Date: 20101027
  Serious: No
  Sender: FDA-Public Use
  Company Number: US-ASTRAZENECA-2009UW20133

PATIENT
  Sex: Female

DRUGS (3)
  1. NEXIUM [Suspect]
     Route: 048
  2. TOPROL-XL [Interacting]
     Route: 048
  3. ANTIBIOTICS [Interacting]

REACTIONS (3)
  - DRUG INTERACTION [None]
  - LYME DISEASE [None]
  - VOMITING [None]
